FAERS Safety Report 21089669 (Version 2)
Quarter: 2022Q3

REPORT INFORMATION
  Report Type: Spontaneous
  Country: BE (occurrence: BE)
  Receive Date: 20220715
  Receipt Date: 20220729
  Transmission Date: 20221027
  Serious: Yes (Death)
  Sender: FDA-Public Use
  Company Number: BE-TEVA-2022-BE-2053851

PATIENT
  Age: 56 Year
  Sex: Male

DRUGS (5)
  1. OXALIPLATIN [Suspect]
     Active Substance: OXALIPLATIN
     Indication: Oesophageal squamous cell carcinoma
     Dosage: 6 COURSES AS A PART OF ADJUVANT CHEMOTHERAPY FOLFOX COMBINATION
     Route: 065
  2. FLUOROURACIL [Suspect]
     Active Substance: FLUOROURACIL
     Indication: Oesophageal squamous cell carcinoma
     Dosage: 6 COURSES AS A PART OF ADJUVANT CHEMOTHERAPY FOLFOX COMBINATION
     Route: 065
  3. PACLITAXEL [Suspect]
     Active Substance: PACLITAXEL
     Indication: Oesophageal squamous cell carcinoma
     Route: 065
  4. LEUCOVORIN [Suspect]
     Active Substance: LEUCOVORIN
     Indication: Oesophageal squamous cell carcinoma
     Dosage: 6 COURSES AS A PART OF ADJUVANT CHEMOTHERAPY FOLFOX COMBINATION
     Route: 065
  5. NIVOLUMAB [Suspect]
     Active Substance: NIVOLUMAB
     Indication: Oesophageal squamous cell carcinoma
     Route: 065

REACTIONS (1)
  - Drug ineffective [Fatal]
